FAERS Safety Report 7217257-4 (Version None)
Quarter: 2010Q4

REPORT INFORMATION
  Report Type: 
  Country: None (occurrence: None)
  Receive Date: 20101227
  Receipt Date: 20101213
  Transmission Date: 20110411
  Serious: Yes (Other)
  Sender: FDA-Public Use
  Company Number: 2010SP065588

PATIENT
  Age: 60 Year
  Sex: Female

DRUGS (7)
  1. DANAPAROID SODIUM (DANAPAROID SODIUM / 01353902/ ) [Suspect]
     Indication: THROMBOTIC THROMBOCYTOPENIC PURPURA
     Dosage: 1250 IU;QD, 2500 IU;QD
     Dates: start: 20090101, end: 20090101
  2. DANAPAROID SODIUM (DANAPAROID SODIUM / 01353902/ ) [Suspect]
     Indication: THROMBOTIC THROMBOCYTOPENIC PURPURA
     Dosage: 1250 IU;QD, 2500 IU;QD
     Dates: start: 20090101, end: 20090101
  3. LOW MOLECULAR HEPARIN [Concomitant]
  4. METHYLPREDNISOLONE [Concomitant]
  5. TEICOPLANIN [Concomitant]
  6. GRANULOCYTE COLONY STIMULATING FACTOR [Concomitant]
  7. ANTITHROMBIN III [Concomitant]

REACTIONS (4)
  - CLOSTRIDIUM TEST POSITIVE [None]
  - DIARRHOEA [None]
  - ETHANOL GELATION TEST POSITIVE [None]
  - PYREXIA [None]
